FAERS Safety Report 4425194-3 (Version None)
Quarter: 2004Q3

REPORT INFORMATION
  Report Type: 
  Country: None (occurrence: None)
  Receive Date: 20040719
  Receipt Date: 20030421
  Transmission Date: 20050211
  Serious: Yes (Other)
  Sender: FDA-Public Use
  Company Number: 172232

PATIENT
  Age: 36 Year
  Sex: Female
  Weight: 90.7194 kg

DRUGS (1)
  1. AVONEX [Suspect]
     Indication: MULTIPLE SCLEROSIS
     Dosage: 30 MCG QW IM
     Route: 030
     Dates: start: 20030301, end: 20030403

REACTIONS (3)
  - HEPATITIS [None]
  - MULTIPLE SCLEROSIS RELAPSE [None]
  - PAIN [None]
